FAERS Safety Report 8776707 (Version 1)
Quarter: 2012Q4

REPORT INFORMATION
  Report Type: 
  Country: JP (occurrence: JP)
  Receive Date: 20120911
  Receipt Date: 20120911
  Transmission Date: 20130627
  Serious: Yes (Death, Disabling, Other)
  Sender: FDA-Public Use
  Company Number: JP-009507513-2011SP036886

PATIENT

DRUGS (6)
  1. DIAZOXIDE [Suspect]
     Indication: HYPOGLYCAEMIA
     Dosage: 75 mg, TID
     Route: 048
     Dates: start: 20110312, end: 20110323
  2. DIAZOXIDE [Suspect]
     Dosage: 75 mg, tid
     Route: 048
     Dates: start: 20110325, end: 20110613
  3. TAKEPRON [Concomitant]
     Indication: GASTROOESOPHAGEAL REFLUX DISEASE
     Dosage: 15 mg, QD
     Route: 048
     Dates: start: 20110211, end: 20110613
  4. TAKEPRON [Concomitant]
     Indication: PROPHYLAXIS
  5. NORVASC [Concomitant]
     Indication: HYPERTENSION
     Dosage: 5 mg, QD
     Route: 048
     Dates: start: 20110211, end: 20110613
  6. ZYLORIC [Concomitant]
     Indication: HYPERURICAEMIA
     Dosage: 100 mg, QD
     Route: 048
     Dates: start: 20110414, end: 20110613

REACTIONS (6)
  - Pseudocyst [Fatal]
  - Arrhythmia [Fatal]
  - Pancreatitis acute [Not Recovered/Not Resolved]
  - Renal failure chronic [Not Recovered/Not Resolved]
  - Decreased appetite [Recovered/Resolved]
  - Pyrexia [Recovered/Resolved]
